FAERS Safety Report 16860157 (Version 1)
Quarter: 2019Q3

REPORT INFORMATION
  Report Type: Spontaneous
  Country: US (occurrence: US)
  Receive Date: 20190927
  Receipt Date: 20190927
  Transmission Date: 20191005
  Serious: No
  Sender: FDA-Public Use
  Company Number: US-009507513-1909USA013861

PATIENT
  Sex: Female

DRUGS (16)
  1. PROGESTERONE. [Concomitant]
     Active Substance: PROGESTERONE
  2. VITAMIN D (UNSPECIFIED) [Concomitant]
     Active Substance: VITAMIN D NOS
  3. ESTRACE [Suspect]
     Active Substance: ESTRADIOL
  4. AZELAIC ACID. [Concomitant]
     Active Substance: AZELAIC ACID
  5. RANITIDINE. [Concomitant]
     Active Substance: RANITIDINE
  6. LEUPROLIDE [Concomitant]
     Active Substance: LEUPROLIDE
  7. PREGNYL [Suspect]
     Active Substance: CHORIOGONADOTROPIN ALFA
     Indication: INFERTILITY
     Dosage: STRENGTH 10000 UNITS; 10000 UNITS AS DIRECTED
     Route: 058
     Dates: start: 20190712
  8. ASCORBIC ACID. [Concomitant]
     Active Substance: ASCORBIC ACID
  9. FOLLISTIM [Suspect]
     Active Substance: FOLLITROPIN
     Indication: INFERTILITY
     Dosage: 300 UNITS BID
     Route: 058
     Dates: start: 20190325
  10. ESTRADIOL. [Concomitant]
     Active Substance: ESTRADIOL
  11. GONADOTROPIN, CHORIONIC [Concomitant]
     Active Substance: CHORIOGONADOTROPIN ALFA
  12. IRON (UNSPECIFIED) (+) MINERALS (UNSPECIFIED) (+) VITAMINS (UNSPECIFIE [Concomitant]
     Active Substance: IRON\MINERALS\VITAMINS
  13. GANIRELIX ACETATE. [Concomitant]
     Active Substance: GANIRELIX ACETATE
  14. CRINONE [Concomitant]
     Active Substance: PROGESTERONE
  15. MENOPUR [Concomitant]
     Active Substance: FOLLITROPIN\LUTEINIZING HORMONE
  16. SERTRALINE HYDROCHLORIDE. [Concomitant]
     Active Substance: SERTRALINE HYDROCHLORIDE

REACTIONS (1)
  - Nausea [Not Recovered/Not Resolved]

NARRATIVE: CASE EVENT DATE: 2019
